FAERS Safety Report 14333814 (Version 8)
Quarter: 2018Q4

REPORT INFORMATION
  Report Type: Spontaneous
  Country: SI (occurrence: SI)
  Receive Date: 20171228
  Receipt Date: 20181015
  Transmission Date: 20190204
  Serious: Yes (Other)
  Sender: FDA-Public Use
  Company Number: SI-PFIZER INC-2017541667

PATIENT
  Age: 81 Year
  Sex: Female

DRUGS (14)
  1. PANTOPRAZOLE [Suspect]
     Active Substance: PANTOPRAZOLE
     Dosage: 20 MG, QD (IN THE MORNING)
     Route: 065
  2. ZOLPIDEM [Suspect]
     Active Substance: ZOLPIDEM\ZOLPIDEM TARTRATE
     Indication: INSOMNIA
     Dosage: 5 MG, UNK (BATCH UNKNOWN)
     Route: 065
  3. PERINDOPRIL [Suspect]
     Active Substance: PERINDOPRIL
     Dosage: 4 MG, 2X/DAY (BID), BATCH UNKOWN
     Route: 065
  4. PERINDOPRIL [Suspect]
     Active Substance: PERINDOPRIL
     Dosage: 4 MG, 2X/DAY (BID)
     Route: 065
  5. ATORVASTATIN CALCIUM. [Suspect]
     Active Substance: ATORVASTATIN CALCIUM
     Dosage: 20 MG, UNK (BATCH UNKNOWN)
     Route: 065
  6. METFORMIN [Concomitant]
     Active Substance: METFORMIN HYDROCHLORIDE
     Dosage: 1000 MG, 2X/DAY
     Route: 065
  7. OMEGA 3 [FISH OIL] [Concomitant]
     Dosage: UNK UNK,UNK
     Route: 065
  8. PANTOPRAZOLE [Suspect]
     Active Substance: PANTOPRAZOLE
     Dosage: 20 MG, QD, BATCH UNKNOWN
  9. ZOLPIDEM [Suspect]
     Active Substance: ZOLPIDEM\ZOLPIDEM TARTRATE
     Dosage: 5 MG, UNK (WHEN SLEEPLESS)
     Route: 065
  10. GLIBENCLAMIDE/PHENFORMIN HYDROCHLORIDE [Concomitant]
     Dosage: 2 DF, 2X/DAY
     Route: 065
  11. BISOPROLOL FUMARATE. [Suspect]
     Active Substance: BISOPROLOL FUMARATE
     Dosage: 2.5 MG, BID, BATCH UNKNOWN
     Route: 065
  12. BISOPROLOL FUMARATE. [Suspect]
     Active Substance: BISOPROLOL FUMARATE
     Dosage: 2.5 MG, 2X/DAY (BID)
     Route: 065
  13. FUROSEMIDE. [Suspect]
     Active Substance: FUROSEMIDE
     Dosage: 2 DF (2 TABLETS), UNK
     Route: 065
  14. WARFARIN [Concomitant]
     Active Substance: WARFARIN
     Dosage: UNK, 1X/DAY (IN THE EVENING)
     Route: 065

REACTIONS (5)
  - Hypotension [Unknown]
  - Night sweats [Unknown]
  - Disturbance in attention [Unknown]
  - Syncope [Unknown]
  - Dizziness [Unknown]
